FAERS Safety Report 11456276 (Version 3)
Quarter: 2015Q3

REPORT INFORMATION
  Report Type: Report from Study
  Country: IE (occurrence: IE)
  Receive Date: 20150903
  Receipt Date: 20150928
  Transmission Date: 20151125
  Serious: Yes (Hospitalization)
  Sender: FDA-Public Use
  Company Number: IE-B.I. PHARMACEUTICALS,INC./RIDGEFIELD-2014-BI-21574BI

PATIENT
  Age: 66 Year
  Sex: Female
  Weight: 70.6 kg

DRUGS (16)
  1. DAKTACORT [Concomitant]
     Active Substance: HYDROCORTISONE\MICONAZOLE NITRATE
     Indication: SKIN INFECTION
     Route: 061
     Dates: start: 20140423, end: 20140515
  2. CANESTEN [Concomitant]
     Active Substance: CLOTRIMAZOLE
     Indication: ANTIFUNGAL TREATMENT
     Dosage: DOSE PER APPLICATION: 1 %
     Route: 061
     Dates: start: 20140414
  3. COZAAR [Concomitant]
     Active Substance: LOSARTAN POTASSIUM
     Indication: HYPERTENSION
     Dosage: 100 MG
     Route: 048
  4. METFORMIN [Concomitant]
     Active Substance: METFORMIN HYDROCHLORIDE
     Indication: DIABETES MELLITUS
     Dosage: 1000 MG
     Route: 048
     Dates: start: 2011
  5. BIBW 2992 [Suspect]
     Active Substance: AFATINIB
     Indication: LUNG ADENOCARCINOMA
     Dosage: 30 MG
     Route: 048
     Dates: start: 20121224
  6. ZOMEL [Concomitant]
     Indication: ANTACID THERAPY
     Dosage: 30 MG
     Route: 048
  7. AVEENO [Concomitant]
     Active Substance: DIMETHICONE\HOMOSALATE\OCTINOXATE\OCTISALATE\TITANIUM DIOXIDE
     Dosage: FORMULATION: WASH
     Route: 061
     Dates: start: 20140423
  8. PIRITON [Concomitant]
     Active Substance: CHLORPHENIRAMINE MALEATE
     Indication: ANTIALLERGIC THERAPY
     Dosage: 4 MG
     Route: 048
     Dates: start: 20140304
  9. CODEINE LINCTUS [Concomitant]
     Active Substance: CHLOROFORM\CODEINE PHOSPHATE\DRIMIA MARITIMA BULB
     Indication: ANTITUSSIVE THERAPY
     Dosage: 15 ML
     Route: 048
     Dates: start: 20131205
  10. AVEENO [Concomitant]
     Active Substance: DIMETHICONE\HOMOSALATE\OCTINOXATE\OCTISALATE\TITANIUM DIOXIDE
     Indication: DRY SKIN PROPHYLAXIS
     Route: 061
     Dates: start: 20140423
  11. CLEXANE [Concomitant]
     Active Substance: ENOXAPARIN SODIUM
     Indication: ANTICOAGULANT THERAPY
     Dosage: 40 MG
     Route: 058
     Dates: start: 20140514
  12. MORPHINE SULFATE/NALTREXONE HYDROCHLORIDE [Concomitant]
     Active Substance: MORPHINE SULFATE\NALTREXONE HYDROCHLORIDE
     Indication: ANALGESIC THERAPY
     Dosage: 10 MG
     Route: 048
     Dates: start: 20131217
  13. ELOCON [Concomitant]
     Active Substance: MOMETASONE FUROATE
     Indication: STEROID THERAPY
     Dosage: FORMULATION: OINTMENT
     Route: 061
     Dates: start: 20140423
  14. CRESTOR [Concomitant]
     Active Substance: ROSUVASTATIN CALCIUM
     Indication: HYPERLIPIDAEMIA
     Dosage: 10 MG
     Route: 048
     Dates: start: 2008
  15. MAXOLON [Concomitant]
     Active Substance: METOCLOPRAMIDE HYDROCHLORIDE
     Indication: VOMITING
     Dosage: 30 MG
     Route: 048
     Dates: start: 20131206
  16. ORAMORPH [Concomitant]
     Active Substance: MORPHINE SULFATE
     Indication: ANALGESIC THERAPY
     Dosage: DOSER PER APPLICATION AND DAILY DOSE : 2.5 MG-10 MG
     Route: 048
     Dates: start: 20131213

REACTIONS (4)
  - Pain of skin [Recovered/Resolved]
  - Intertrigo [Recovered/Resolved]
  - Skin bacterial infection [Recovered/Resolved]
  - Eczema [Recovered/Resolved]

NARRATIVE: CASE EVENT DATE: 20140414
